FAERS Safety Report 9725509 (Version 1)
Quarter: 2013Q4

REPORT INFORMATION
  Report Type: Spontaneous
  Country: US (occurrence: None)
  Receive Date: 20131202
  Receipt Date: 20131202
  Transmission Date: 20140711
  Serious: No
  Sender: FDA-Public Use
  Company Number: None

PATIENT
  Age: 2 Year
  Sex: Female
  Weight: 12.7 kg

DRUGS (1)
  1. MONTELUKAST 4 MG DR REDDY^S [Suspect]
     Indication: ASTHMA
     Dosage: ONE PACK
     Route: 048
     Dates: start: 20131115, end: 20131124

REACTIONS (6)
  - Hallucination [None]
  - Sleep terror [None]
  - Fear [None]
  - Sleep disorder [None]
  - Restlessness [None]
  - Insomnia [None]
